FAERS Safety Report 7703164-7 (Version None)
Quarter: 2011Q3

REPORT INFORMATION
  Report Type: 
  Country: None (occurrence: None)
  Receive Date: 20110823
  Receipt Date: 20110822
  Transmission Date: 20111222
  Serious: Yes (Other)
  Sender: FDA-Public Use
  Company Number: US-PFIZER INC-2011193349

PATIENT
  Sex: Female
  Weight: 63.5 kg

DRUGS (4)
  1. LISINOPRIL AND HYDROCHLOROTHIAZIDE [Concomitant]
     Indication: BLOOD PRESSURE ABNORMAL
     Dosage: 20/25MG, DAILY
     Route: 048
     Dates: start: 20050101
  2. ATENOLOL [Concomitant]
     Indication: PULSE ABNORMAL
     Dosage: 50 MG, 2X/DAY
     Route: 048
  3. HYDRALAZINE [Concomitant]
     Indication: BLOOD PRESSURE ABNORMAL
     Dosage: 25 MG, 3X/DAY
     Route: 048
  4. NEURONTIN [Suspect]
     Indication: NEUROPATHY PERIPHERAL
     Dosage: 300 MG, 3X/DAY
     Route: 048
     Dates: start: 20090101

REACTIONS (1)
  - THYROID DISORDER [None]
